FAERS Safety Report 22732982 (Version 2)
Quarter: 2024Q3

REPORT INFORMATION
  Report Type: Spontaneous
  Country: US (occurrence: US)
  Receive Date: 20230720
  Receipt Date: 20240716
  Transmission Date: 20241016
  Serious: No
  Sender: NOVO NORDISK
  Company Number: US-NOVOPROD-1043849

PATIENT
  Age: 72 Year
  Sex: Male

DRUGS (1)
  1. OZEMPIC [Suspect]
     Active Substance: SEMAGLUTIDE
     Indication: Type 2 diabetes mellitus
     Dosage: 0.25MG
     Route: 058
     Dates: start: 20230215

REACTIONS (3)
  - Bowel movement irregularity [Not Recovered/Not Resolved]
  - Abdominal distension [Not Recovered/Not Resolved]
  - Off label use [Not Recovered/Not Resolved]

NARRATIVE: CASE EVENT DATE: 20230301
